FAERS Safety Report 17083899 (Version 1)
Quarter: 2019Q4

REPORT INFORMATION
  Report Type: Report from Study
  Country: US (occurrence: US)
  Receive Date: 20191127
  Receipt Date: 20191127
  Transmission Date: 20200122
  Serious: Yes (Other)
  Sender: FDA-Public Use
  Company Number: NVSC2019US050162

PATIENT
  Age: 34 Year

DRUGS (1)
  1. COSENTYX [Suspect]
     Active Substance: SECUKINUMAB
     Indication: PSORIASIS
     Dosage: 300 MG, QW (300 MG WEEKLY FOR 5 WEEKS THEN 300 MG, Q4W)
     Route: 058
     Dates: start: 20190815

REACTIONS (3)
  - Diarrhoea [Recovering/Resolving]
  - Helicobacter infection [Recovering/Resolving]
  - Abdominal pain upper [Recovering/Resolving]

NARRATIVE: CASE EVENT DATE: 20191015
